FAERS Safety Report 8346945-1 (Version None)
Quarter: 2012Q2

REPORT INFORMATION
  Report Type: 
  Country: None (occurrence: None)
  Receive Date: 20120509
  Receipt Date: 20120503
  Transmission Date: 20120825
  Serious: Yes (Hospitalization)
  Sender: FDA-Public Use
  Company Number: CN-SANOFI-AVENTIS-2012SA030995

PATIENT
  Age: 23 Year
  Sex: Female
  Weight: 55 kg

DRUGS (6)
  1. LANTUS [Suspect]
     Indication: DIABETES MELLITUS
     Dosage: INJECTION TIME:EVENING
     Route: 058
     Dates: start: 20040101
  2. LANTUS [Suspect]
     Route: 058
  3. INSULIN ASPART [Concomitant]
     Indication: DIABETES MELLITUS
     Route: 058
  4. LANTUS [Suspect]
     Dosage: INJECTION TIME:MORNING
     Route: 058
     Dates: start: 20120501
  5. SOLOSTAR [Suspect]
     Dates: start: 20120501
  6. SOLOSTAR [Suspect]
     Indication: DEVICE THERAPY
     Dates: start: 20040101

REACTIONS (4)
  - VOMITING [None]
  - KETOSIS [None]
  - GLUCOSE URINE PRESENT [None]
  - DRUG DOSE OMISSION [None]
